FAERS Safety Report 8308787-2 (Version None)
Quarter: 2012Q2

REPORT INFORMATION
  Report Type: 
  Country: None (occurrence: None)
  Receive Date: 20120424
  Receipt Date: 20120419
  Transmission Date: 20120825
  Serious: Yes (Hospitalization)
  Sender: FDA-Public Use
  Company Number: US-ABBOTT-11P-163-0886047-00

PATIENT
  Sex: Female

DRUGS (3)
  1. HUMIRA [Suspect]
     Dates: start: 20111107, end: 20111212
  2. HUMIRA [Suspect]
     Dates: start: 20111024, end: 20111024
  3. HUMIRA [Suspect]
     Indication: PSORIASIS
     Dates: start: 20111017, end: 20111017

REACTIONS (6)
  - MIGRAINE [None]
  - HYPOAESTHESIA ORAL [None]
  - GRIP STRENGTH DECREASED [None]
  - MULTIPLE SCLEROSIS [None]
  - HYPOAESTHESIA [None]
  - PARAESTHESIA [None]
